FAERS Safety Report 8206643-1 (Version None)
Quarter: 2012Q1

REPORT INFORMATION
  Report Type: 
  Country: None (occurrence: None)
  Receive Date: 20120314
  Receipt Date: 20120305
  Transmission Date: 20120608
  Serious: Yes (Hospitalization)
  Sender: FDA-Public Use
  Company Number: DE-BIOGENIDEC-2011BI046188

PATIENT
  Age: 23 Year
  Sex: Female
  Weight: 60 kg

DRUGS (3)
  1. AVONEX [Suspect]
     Indication: MULTIPLE SCLEROSIS
     Route: 030
     Dates: start: 20111201
  2. ACETAMINOPHEN [Concomitant]
     Indication: PROPHYLAXIS
     Dates: start: 20111201, end: 20111201
  3. IBUPROFEN TABLETS [Concomitant]
     Indication: PROPHYLAXIS
     Dates: start: 20111201, end: 20111201

REACTIONS (4)
  - FALL [None]
  - INFLUENZA LIKE ILLNESS [None]
  - HYPOTENSION [None]
  - LACERATION [None]
